FAERS Safety Report 12713888 (Version 1)
Quarter: 2016Q3

REPORT INFORMATION
  Report Type: Report from Study
  Country: US (occurrence: US)
  Receive Date: 20160905
  Receipt Date: 20160905
  Transmission Date: 20161109
  Serious: Yes (Hospitalization, Other)
  Sender: FDA-Public Use
  Company Number: US-ROCHE-1750284

PATIENT
  Age: 51 Year
  Sex: Male
  Weight: 70.4 kg

DRUGS (3)
  1. BEVACIZUMAB [Suspect]
     Active Substance: BEVACIZUMAB
     Indication: MALIGNANT MELANOMA
     Dosage: 28/DEC/2015, LAST DOSE PRIOR TO SAE?04/DEC/2015 CYCLE 3 (TOTAL DOSE RECEIVED: 1055 MG)?28/DEC/2015 C
     Route: 042
     Dates: start: 20151028
  2. IPILIMUMAB [Suspect]
     Active Substance: IPILIMUMAB
     Indication: MALIGNANT MELANOMA
     Dosage: 28/DEC/2015, LAST DOSE PRIOR TO SAE?04/DEC/2015 CYCLE 3 (TOTAL DOSE RECEIVED: 211 MG)?28/DEC/2015 CY
     Route: 042
     Dates: start: 20151023
  3. HYDROCHLOROTHIAZIDE. [Suspect]
     Active Substance: HYDROCHLOROTHIAZIDE
     Indication: MALIGNANT MELANOMA
     Route: 065

REACTIONS (14)
  - Metabolic disorder [Recovered/Resolved]
  - Muscular weakness [Recovered/Resolved]
  - Hypophosphataemia [Recovered/Resolved]
  - Hypokalaemia [Unknown]
  - Hypertension [Unknown]
  - Dehydration [Recovered/Resolved]
  - Adrenal insufficiency [Recovered/Resolved]
  - Hypokalaemia [Recovered/Resolved]
  - Fatigue [Unknown]
  - Hyponatraemia [Recovered/Resolved]
  - Lipase increased [Unknown]
  - Hypophosphataemia [Unknown]
  - Gait disturbance [Unknown]
  - Hyponatraemia [Unknown]

NARRATIVE: CASE EVENT DATE: 20160115
